FAERS Safety Report 13541354 (Version 1)
Quarter: 2017Q2

REPORT INFORMATION
  Report Type: Spontaneous
  Country: US (occurrence: US)
  Receive Date: 20170512
  Receipt Date: 20170512
  Transmission Date: 20170830
  Serious: No
  Sender: FDA-Public Use
  Company Number: US-SA-2016SA111954

PATIENT
  Age: 55 Year
  Sex: Female

DRUGS (6)
  1. ORENCIA [Concomitant]
     Active Substance: ABATACEPT
  2. LEVEMIR [Concomitant]
     Active Substance: INSULIN DETEMIR
  3. REMICADE [Concomitant]
     Active Substance: INFLIXIMAB
  4. HUMALOG [Concomitant]
     Active Substance: INSULIN LISPRO
  5. NOVOLOG [Concomitant]
     Active Substance: INSULIN ASPART
  6. APIDRA [Suspect]
     Active Substance: INSULIN GLULISINE
     Indication: DIABETES MELLITUS
     Route: 065

REACTIONS (4)
  - Arthralgia [Unknown]
  - Swelling [Unknown]
  - Fatigue [Unknown]
  - Unevaluable event [Unknown]
